FAERS Safety Report 16582959 (Version 1)
Quarter: 2019Q3

REPORT INFORMATION
  Report Type: Report from Study
  Country: US (occurrence: US)
  Receive Date: 20190717
  Receipt Date: 20190717
  Transmission Date: 20191004
  Serious: Yes (Other)
  Sender: FDA-Public Use
  Company Number: US-TEVA-2019-US-1077749

PATIENT
  Age: 16 Year
  Sex: Female

DRUGS (10)
  1. TIGECYCLINE. [Concomitant]
     Active Substance: TIGECYCLINE
     Indication: MYCOBACTERIUM ABSCESSUS INFECTION
     Dosage: PRE-TRANSPLANT
     Route: 042
  2. TIGECYCLINE. [Concomitant]
     Active Substance: TIGECYCLINE
     Indication: MYCOBACTERIUM ABSCESSUS INFECTION
     Dosage: SCHEDULED FOR 6 MONTHS POST-TRANSPLANT
     Route: 042
  3. NORMAL SALINE [Concomitant]
     Active Substance: SODIUM CHLORIDE
     Indication: IRRIGATION THERAPY
     Dosage: 1G AMIKACIN IN 5L 0.9% SODIUM CHLORIDE FOR IRRIGATION OF PLEURAL CAVITY INTRA-OPERATIVELY
     Route: 065
  4. CLOFAZIMINE [Concomitant]
     Active Substance: CLOFAZIMINE
     Indication: MYCOBACTERIUM ABSCESSUS INFECTION
     Dosage: PRE-TRANSPLANT
     Route: 048
  5. AMIKACIN. [Suspect]
     Active Substance: AMIKACIN
     Indication: MYCOBACTERIUM ABSCESSUS INFECTION
     Dosage: 250 MILLIGRAM DAILY; PRE-TRANSPLANT; SCHEDULED FOR 6 MONTHS POST-TRANSPLANT
     Route: 050
  6. CLOFAZIMINE [Concomitant]
     Active Substance: CLOFAZIMINE
     Indication: MYCOBACTERIUM ABSCESSUS INFECTION
     Dosage: SCHEDULED FOR 6 MONTHS POST-TRANSPLANT
     Route: 048
  7. TEDIZOLID [Suspect]
     Active Substance: TEDIZOLID
     Indication: MYCOBACTERIUM ABSCESSUS INFECTION
     Dosage: 100 MILLIGRAM DAILY; PRE-TRANSPLANT
     Route: 048
  8. IMIPENEM [Concomitant]
     Active Substance: IMIPENEM
     Indication: MYCOBACTERIUM ABSCESSUS INFECTION
     Route: 042
     Dates: start: 201711
  9. IMIPENEM [Concomitant]
     Active Substance: IMIPENEM
     Indication: MYCOBACTERIUM ABSCESSUS INFECTION
     Dosage: SCHEDULED FOR 6 MONTHS POST-TRANSPLANT
     Route: 042
  10. AMIKACIN. [Suspect]
     Active Substance: AMIKACIN
     Dosage: 1G AMIKACIN IN 5L 0.9% SODIUM CHLORIDE FOR IRRIGATION OF PLEURAL CAVITY INTRA-OPERATIVELY
     Route: 050

REACTIONS (2)
  - Neuropathy peripheral [Unknown]
  - Ototoxicity [Unknown]
